FAERS Safety Report 10705702 (Version 1)
Quarter: 2015Q1

REPORT INFORMATION
  Report Type: Spontaneous
  Country: US (occurrence: US)
  Receive Date: 20150112
  Receipt Date: 20150112
  Transmission Date: 20150721
  Serious: Yes (Hospitalization, Other)
  Sender: FDA-Public Use
  Company Number: US-GLAXOSMITHKLINE-US2015GSK001043

PATIENT
  Sex: Female

DRUGS (5)
  1. LAMICTAL [Suspect]
     Active Substance: LAMOTRIGINE
     Indication: EPILEPSY
  2. ADVIL [Concomitant]
     Active Substance: IBUPROFEN
  3. LAMOTRIGINE. [Suspect]
     Active Substance: LAMOTRIGINE
     Indication: EPILEPSY
     Dosage: 200 MG, UNK
     Route: 048
  4. PAIN PATCH (UNKNOWN) [Concomitant]
  5. LORAZEPAM. [Concomitant]
     Active Substance: LORAZEPAM

REACTIONS (8)
  - Claustrophobia [Recovered/Resolved]
  - Panic attack [Recovered/Resolved]
  - Hyperventilation [Recovered/Resolved]
  - Hallucination [Recovered/Resolved]
  - Fear [Recovered/Resolved]
  - Seizure [Recovered/Resolved]
  - Feeling abnormal [Recovered/Resolved]
  - Vision blurred [Recovered/Resolved]

NARRATIVE: CASE EVENT DATE: 2009
